FAERS Safety Report 6106560-7 (Version None)
Quarter: 2009Q1

REPORT INFORMATION
  Report Type: 
  Country: None (occurrence: None)
  Receive Date: 20090306
  Receipt Date: 20090302
  Transmission Date: 20090719
  Serious: Yes (Disabling)
  Sender: FDA-Public Use
  Company Number: US-MERCK-0901USA03139

PATIENT
  Age: 20 Year
  Sex: Female
  Weight: 61 kg

DRUGS (2)
  1. SINGULAIR [Suspect]
     Indication: ASTHMA
     Route: 048
     Dates: start: 20050101, end: 20080101
  2. ALLEGRA D 24 HOUR [Concomitant]
     Route: 065
     Dates: start: 20050101

REACTIONS (4)
  - DEPRESSION [None]
  - EDUCATIONAL PROBLEM [None]
  - SCHOOL REFUSAL [None]
  - SUICIDAL IDEATION [None]
